FAERS Safety Report 13610342 (Version 1)
Quarter: 2017Q2

REPORT INFORMATION
  Report Type: Spontaneous
  Country: US (occurrence: US)
  Receive Date: 20170602
  Receipt Date: 20170602
  Transmission Date: 20170830
  Serious: Yes (Hospitalization)
  Sender: FDA-Public Use
  Company Number: None

PATIENT
  Age: 48 Year
  Sex: Female
  Weight: 63 kg

DRUGS (1)
  1. LIQUID E-Z-PAQUE [Suspect]
     Active Substance: BARIUM SULFATE
     Indication: BARIUM SWALLOW
     Dosage: QUANTITY:1 1;?
     Route: 048
     Dates: start: 20170530, end: 20170530

REACTIONS (1)
  - Barium impaction [None]

NARRATIVE: CASE EVENT DATE: 20170530
